FAERS Safety Report 6464773-9 (Version None)
Quarter: 2009Q4

REPORT INFORMATION
  Report Type: 
  Country: None (occurrence: None)
  Receive Date: 20091201
  Receipt Date: 20091118
  Transmission Date: 20100525
  Serious: Yes (Other)
  Sender: FDA-Public Use
  Company Number: PHHY2009BR50967

PATIENT
  Age: 83 Year
  Sex: Female

DRUGS (6)
  1. DIOVAN AMLO FIX [Suspect]
     Indication: HYPERTENSION
     Dosage: 1 TABLET/DAY
     Route: 048
  2. DIGOXIN [Concomitant]
     Dosage: 1 TABLET/DAY
     Route: 048
  3. METFORMIN HCL [Concomitant]
     Indication: TYPE 2 DIABETES MELLITUS
     Dosage: 2 TABLETS/DAY
     Route: 048
  4. INSUMAN [Concomitant]
     Indication: TYPE 2 DIABETES MELLITUS
     Dosage: 20 UI IN THE MORNING AND 10 UI AT NIGHT
     Route: 058
  5. CAPOTEN [Concomitant]
     Indication: HYPERTENSION
     Dosage: 2 DF, TID
     Route: 048
  6. AMLODIPINE BESYLATE [Concomitant]
     Indication: HYPERTENSION
     Dosage: 1 TABLET/DAY
     Route: 048
     Dates: start: 20091121

REACTIONS (3)
  - ANAEMIA [None]
  - HAEMOGLOBIN DECREASED [None]
  - URINE ABNORMALITY [None]
